FAERS Safety Report 21573160 (Version 1)
Quarter: 2022Q4

REPORT INFORMATION
  Report Type: Report from Study
  Country: TR (occurrence: TR)
  Receive Date: 20221109
  Receipt Date: 20221109
  Transmission Date: 20230113
  Serious: Yes (Other)
  Sender: FDA-Public Use
  Company Number: TR-DSJP-DSE-2022-139952

PATIENT
  Sex: Male
  Weight: 67 kg

DRUGS (1)
  1. EDOXABAN [Suspect]
     Active Substance: EDOXABAN
     Indication: Atrial fibrillation
     Dosage: 30 MG, QD (1X1)
     Route: 048

REACTIONS (2)
  - Haemorrhage [Recovered/Resolved]
  - Hepatic failure [Unknown]
